FAERS Safety Report 8415463-4 (Version None)
Quarter: 2012Q2

REPORT INFORMATION
  Report Type: 
  Country: None (occurrence: None)
  Receive Date: 20120606
  Receipt Date: 20120601
  Transmission Date: 20120825
  Serious: Yes (Death)
  Sender: FDA-Public Use
  Company Number: PHHY2012CA047323

PATIENT

DRUGS (8)
  1. PREDNISONE [Concomitant]
     Dosage: 10 MG, QID, DAYS 0-28
     Route: 048
  2. ASPARAGINASE [Concomitant]
     Dosage: 25 000 IU/M2, DAY 4
     Route: 030
  3. METHOTREXATE [Concomitant]
     Dosage: 4 G/M2 OVER 1 H, DAY 2
     Route: 042
  4. CYTARABINE [Concomitant]
     Dosage: 40 MG, UNK
     Route: 037
  5. IMATINIB MESYLATE [Suspect]
     Indication: ACUTE LYMPHOCYTIC LEUKAEMIA
     Dosage: 400 MG DAILY (DAYS 2 TO 14)
     Route: 048
  6. DOXORUBICIN HCL [Concomitant]
     Dosage: 30 MG/M2 IV, DAYS 0 AND 1
     Route: 042
  7. VINCRISTINE [Concomitant]
     Dosage: 2 MG, DAYS 0, 7, 14, 21
     Route: 042
  8. HYDROCORTISONE [Concomitant]
     Dosage: 15 MG, UNK
     Route: 037

REACTIONS (2)
  - DEATH [None]
  - THERAPEUTIC RESPONSE DECREASED [None]
